FAERS Safety Report 9423471 (Version 3)
Quarter: 2014Q1

REPORT INFORMATION
  Report Type: Spontaneous
  Country: US (occurrence: US)
  Receive Date: 20130726
  Receipt Date: 20140227
  Transmission Date: 20141002
  Serious: Yes (Hospitalization)
  Sender: FDA-Public Use
  Company Number: US-ASTRAZENECA-2013SE51453

PATIENT
  Age: 65 Year
  Sex: Male
  Weight: 68 kg

DRUGS (20)
  1. NEXIUM [Suspect]
     Indication: HELICOBACTER GASTRITIS
     Route: 048
     Dates: start: 2004
  2. NEXIUM [Suspect]
     Indication: OESOPHAGEAL HAEMORRHAGE
     Route: 048
     Dates: start: 2004
  3. NEXIUM [Suspect]
     Indication: HELICOBACTER GASTRITIS
     Route: 048
     Dates: start: 2008
  4. NEXIUM [Suspect]
     Indication: OESOPHAGEAL HAEMORRHAGE
     Route: 048
     Dates: start: 2008
  5. NEXIUM [Suspect]
     Indication: HELICOBACTER GASTRITIS
     Route: 048
     Dates: start: 2009
  6. NEXIUM [Suspect]
     Indication: OESOPHAGEAL HAEMORRHAGE
     Route: 048
     Dates: start: 2009
  7. ANTIBIOTICS [Suspect]
     Route: 065
  8. WARFARIN [Concomitant]
     Indication: ANTICOAGULANT THERAPY
     Route: 048
     Dates: start: 1998
  9. WARFARIN [Concomitant]
     Indication: PULMONARY EMBOLISM
     Route: 048
     Dates: start: 1998
  10. WARFARIN [Concomitant]
     Indication: ANTICOAGULANT THERAPY
     Route: 048
     Dates: start: 1999
  11. WARFARIN [Concomitant]
     Indication: PULMONARY EMBOLISM
     Route: 048
     Dates: start: 1999
  12. WARFARIN [Concomitant]
     Indication: ANTICOAGULANT THERAPY
  13. WARFARIN [Concomitant]
     Indication: PULMONARY EMBOLISM
  14. FOLIC ACID [Concomitant]
     Indication: VITAMIN SUPPLEMENTATION
     Dosage: DAILY
     Route: 048
  15. RITALIN [Concomitant]
     Indication: ATTENTION DEFICIT/HYPERACTIVITY DISORDER
     Route: 048
  16. ADDERALL [Concomitant]
     Indication: ATTENTION DEFICIT/HYPERACTIVITY DISORDER
     Dates: start: 2002, end: 2006
  17. VYVANSE [Concomitant]
     Indication: ATTENTION DEFICIT/HYPERACTIVITY DISORDER
     Dates: start: 2008, end: 2012
  18. VYVANSE [Concomitant]
     Indication: ATTENTION DEFICIT/HYPERACTIVITY DISORDER
  19. COUMADIN [Concomitant]
  20. KLONOPIN [Concomitant]

REACTIONS (13)
  - Prothrombin time abnormal [Unknown]
  - Epistaxis [Unknown]
  - Contusion [Unknown]
  - Haematinuria [Unknown]
  - Tearfulness [Unknown]
  - Gastrooesophageal reflux disease [Recovered/Resolved]
  - Osteopenia [Unknown]
  - Anticoagulation drug level above therapeutic [Unknown]
  - Feeling abnormal [Unknown]
  - Osteoporosis [Unknown]
  - Insomnia [Unknown]
  - Off label use [Unknown]
  - Drug dose omission [Unknown]
